FAERS Safety Report 13950006 (Version 3)
Quarter: 2017Q4

REPORT INFORMATION
  Report Type: Spontaneous
  Country: FJ (occurrence: FJ)
  Receive Date: 20170908
  Receipt Date: 20171031
  Transmission Date: 20180320
  Serious: Yes (Hospitalization)
  Sender: FDA-Public Use
  Company Number: FJ-IMPAX LABORATORIES, INC-2017-IPXL-02649

PATIENT
  Age: 52 Year
  Sex: Male

DRUGS (3)
  1. DIETHYLCARBAMAZINE CITRATE [Suspect]
     Active Substance: DIETHYLCARBAMAZINE CITRATE
     Indication: FILARIASIS LYMPHATIC
     Dosage: 400 MG, (FOUR 100 MG TABLETS)
     Route: 048
     Dates: start: 20170821, end: 20170821
  2. SALBUTAMOL [Concomitant]
     Active Substance: ALBUTEROL
     Indication: CHRONIC OBSTRUCTIVE PULMONARY DISEASE
     Dosage: UNK
     Route: 065
     Dates: start: 2015
  3. ALBENZA [Suspect]
     Active Substance: ALBENDAZOLE
     Indication: FILARIASIS LYMPHATIC
     Dosage: 400 MG, SINGLE
     Route: 048
     Dates: start: 20170821, end: 20170821

REACTIONS (1)
  - Chronic obstructive pulmonary disease [Recovering/Resolving]

NARRATIVE: CASE EVENT DATE: 20170821
